FAERS Safety Report 6139744 (Version 2)
Quarter: 2019Q3

REPORT INFORMATION
  Report Type: Spontaneous
  Country: NL (occurrence: NL)
  Receive Date: 20061002
  Receipt Date: 20190923
  Transmission Date: 20191005
  Serious: Yes (Hospitalization)
  Sender: FDA-Public Use
  Company Number: PHBS2005NL15146

PATIENT
  Age: 72 Year
  Sex: Female

DRUGS (8)
  1. ALENDRONIC ACID [Concomitant]
     Active Substance: ALENDRONIC ACID
     Indication: GASTROINTESTINAL STROMAL TUMOUR
     Route: 065
  2. GLIVEC [Suspect]
     Active Substance: IMATINIB MESYLATE
     Indication: GASTROINTESTINAL STROMAL TUMOUR
     Dosage: 400 MG, QID
     Route: 048
  3. LEVOTHYROXINE. [Interacting]
     Active Substance: LEVOTHYROXINE
     Dosage: 175 UG, QID
     Route: 048
  4. HYDROCHLOROTHIAZIDE. [Concomitant]
     Active Substance: HYDROCHLOROTHIAZIDE
     Indication: GASTROINTESTINAL STROMAL TUMOUR
     Route: 065
  5. QUINAPRIL. [Concomitant]
     Active Substance: QUINAPRIL
     Indication: GASTROINTESTINAL STROMAL TUMOUR
     Route: 065
  6. LEVOTHYROXINE. [Interacting]
     Active Substance: LEVOTHYROXINE
     Dosage: 250 UG, QID
     Route: 048
  7. LEVOTHYROXINE. [Interacting]
     Active Substance: LEVOTHYROXINE
     Indication: GASTROINTESTINAL STROMAL TUMOUR
     Dosage: 200 UG, QID
     Route: 048
  8. GLIVEC [Interacting]
     Active Substance: IMATINIB MESYLATE
     Dosage: 600 MG, QID
     Route: 048

REACTIONS (11)
  - Alopecia [Recovered/Resolved]
  - Periorbital oedema [Recovered/Resolved]
  - Asthenia [Recovered/Resolved]
  - Hypothyroidism [Recovered/Resolved]
  - Fatigue [Recovered/Resolved]
  - Drug interaction [Recovered/Resolved]
  - Blood thyroid stimulating hormone increased [Recovered/Resolved]
  - Face oedema [Recovered/Resolved]
  - Onychoclasis [Recovered/Resolved]
  - Nausea [Recovered/Resolved]
  - Temperature intolerance [Recovered/Resolved]
